FAERS Safety Report 5364132-6 (Version None)
Quarter: 2007Q2

REPORT INFORMATION
  Report Type: 
  Country: None (occurrence: None)
  Receive Date: 20070620
  Receipt Date: 20070607
  Transmission Date: 20071010
  Serious: Yes (Hospitalization)
  Sender: FDA-Public Use
  Company Number: US-ELI_LILLY_AND_COMPANY-US200706001579

PATIENT
  Age: 80 Year
  Sex: Female

DRUGS (4)
  1. FORTEO [Suspect]
     Indication: OSTEOPOROSIS
     Dates: start: 20070201, end: 20070511
  2. SYNTHROID [Concomitant]
     Indication: THYROID DISORDER
  3. MULTI-VITAMIN [Concomitant]
     Indication: SUPPLEMENTATION THERAPY
  4. OYSTER SHELL CALCIUM WITH VITAMIN D/01675501/ [Concomitant]
     Indication: SUPPLEMENTATION THERAPY

REACTIONS (2)
  - CARDIAC DISORDER [None]
  - CHEST PAIN [None]
